FAERS Safety Report 18181255 (Version 1)
Quarter: 2020Q3

REPORT INFORMATION
  Report Type: Spontaneous
  Country: US (occurrence: US)
  Receive Date: 20200821
  Receipt Date: 20200821
  Transmission Date: 20201103
  Serious: Yes (Hospitalization)
  Sender: FDA-Public Use
  Company Number: US-DSJP-DSU-2020-123138

PATIENT
  Age: 69 Year
  Sex: Male
  Weight: 67.12 kg

DRUGS (1)
  1. ENHERTU [Suspect]
     Active Substance: FAM-TRASTUZUMAB DERUXTECAN-NXKI
     Indication: COLORECTAL CANCER
     Dosage: 5.4 MG/KG ^3 CYCLES^
     Route: 042
     Dates: start: 20200617, end: 20200729

REACTIONS (5)
  - Blood creatinine increased [Unknown]
  - Fatigue [Unknown]
  - Blood glucose increased [Unknown]
  - Blood sodium decreased [Unknown]
  - Off label use [Unknown]

NARRATIVE: CASE EVENT DATE: 2020
